FAERS Safety Report 4443935-6 (Version None)
Quarter: 2004Q3

REPORT INFORMATION
  Report Type: 
  Country: None (occurrence: None)
  Receive Date: 20040908
  Receipt Date: 20040831
  Transmission Date: 20050211
  Serious: Yes (Hospitalization)
  Sender: FDA-Public Use
  Company Number: PHFR2004GB03360

PATIENT
  Age: 40 Year
  Sex: Male
  Weight: 70 kg

DRUGS (2)
  1. DICLOFENAC [Suspect]
     Indication: OSTEOARTHRITIS
     Dosage: 75 MG, BID
     Route: 048
     Dates: start: 20030801, end: 20040725
  2. METOCLOPRAMIDE [Concomitant]
     Indication: NAUSEA
     Dosage: 10 MG, TID
     Route: 048
     Dates: start: 20040721

REACTIONS (3)
  - EPISTAXIS [None]
  - HAEMATEMESIS [None]
  - HAEMOPTYSIS [None]
